FAERS Safety Report 16398793 (Version 1)
Quarter: 2019Q2

REPORT INFORMATION
  Report Type: Report from Study
  Country: MX (occurrence: MX)
  Receive Date: 20190606
  Receipt Date: 20190606
  Transmission Date: 20190711
  Serious: Yes (Hospitalization)
  Sender: FDA-Public Use
  Company Number: MX-AMGEN-MEXSL2019088464

PATIENT
  Age: 67 Year
  Sex: Male

DRUGS (2)
  1. VECTIBIX [Suspect]
     Active Substance: PANITUMUMAB
     Indication: METASTASES TO LIVER
  2. VECTIBIX [Suspect]
     Active Substance: PANITUMUMAB
     Indication: COLON CANCER METASTATIC
     Dosage: 600 MILLIGRAM, EVERY 15 DAYS
     Route: 065

REACTIONS (4)
  - Oral disorder [Unknown]
  - General physical health deterioration [Unknown]
  - Weight decreased [Unknown]
  - Lip disorder [Unknown]
